FAERS Safety Report 5455534-8 (Version None)
Quarter: 2007Q3

REPORT INFORMATION
  Report Type: 
  Country: None (occurrence: None)
  Receive Date: 20070918
  Receipt Date: 20070228
  Transmission Date: 20080115
  Serious: Yes (Other)
  Sender: FDA-Public Use
  Company Number: US-ASTRAZENECA-2006UW21865

PATIENT
  Sex: Male
  Weight: 63.6 kg

DRUGS (3)
  1. SEROQUEL [Suspect]
     Indication: DEPRESSION
     Route: 048
     Dates: start: 20010101, end: 20060101
  2. THORAZINE [Suspect]
  3. ZYPREXA [Suspect]

REACTIONS (2)
  - PANCREATITIS [None]
  - TYPE 1 DIABETES MELLITUS [None]
